FAERS Safety Report 4490920-4 (Version None)
Quarter: 2004Q4

REPORT INFORMATION
  Report Type: 
  Country: None (occurrence: None)
  Receive Date: 20041027
  Receipt Date: 20041011
  Transmission Date: 20050328
  Serious: Yes (Hospitalization)
  Sender: FDA-Public Use
  Company Number: 2004-BP-08553BP

PATIENT
  Age: 70 Year
  Sex: Female
  Weight: 101.6 kg

DRUGS (9)
  1. SPIRIVA [Suspect]
     Indication: CHRONIC OBSTRUCTIVE AIRWAYS DISEASE
     Dosage: 18 MCG (18 MCG), IH
     Route: 055
     Dates: start: 20040805, end: 20040908
  2. SPIRIVA [Suspect]
     Indication: DYSPNOEA
     Dosage: 18 MCG (18 MCG), IH
     Route: 055
     Dates: start: 20040805, end: 20040908
  3. PREDNISONE [Concomitant]
  4. SINGULAIR [Concomitant]
  5. XANAX [Concomitant]
  6. ALBUTEROL + ATROVENT (SALBUTAMOL W/IPRATROPIUM) [Concomitant]
  7. CELEXA [Concomitant]
  8. ADVAIR (SERETIDE MITE) [Concomitant]
  9. OXYGEN (OXYGEN) [Concomitant]

REACTIONS (6)
  - DYSARTHRIA [None]
  - FATIGUE [None]
  - HEADACHE [None]
  - IRRITABILITY [None]
  - MEMORY IMPAIRMENT [None]
  - MENTAL STATUS CHANGES [None]
